FAERS Safety Report 7197551-6 (Version None)
Quarter: 2010Q4

REPORT INFORMATION
  Report Type: 
  Country: None (occurrence: None)
  Receive Date: 20101227
  Receipt Date: 20101220
  Transmission Date: 20110411
  Serious: Yes (Hospitalization, Other)
  Sender: FDA-Public Use
  Company Number: US-SANOFI-AVENTIS-2010SA035629

PATIENT
  Age: 90 Year
  Sex: Male
  Weight: 59 kg

DRUGS (11)
  1. MULTAQ [Suspect]
     Indication: ATRIAL FIBRILLATION
     Route: 065
     Dates: start: 20100615
  2. ALTACE [Concomitant]
  3. ASPIRIN [Concomitant]
  4. CRESTOR [Concomitant]
     Dosage: 2-3 TIMES A WEEK
  5. AMLODIPINE [Concomitant]
  6. PLAVIX [Concomitant]
  7. THALITONE [Concomitant]
     Dosage: M.W,F
  8. ACETAMINOPHEN [Concomitant]
  9. GLYCERYL TRINITRATE [Concomitant]
     Dosage: AS NEEDED
  10. COREG [Concomitant]
  11. ASACOL [Concomitant]

REACTIONS (4)
  - ATRIAL FIBRILLATION [None]
  - HEART RATE DECREASED [None]
  - HEART RATE INCREASED [None]
  - HYPOTENSION [None]
